FAERS Safety Report 20701465 (Version 1)
Quarter: 2022Q2

REPORT INFORMATION
  Report Type: Other
  Country: KR (occurrence: None)
  Receive Date: 20220412
  Receipt Date: 20220412
  Transmission Date: 20220720
  Serious: Yes (Hospitalization, Other)
  Sender: FDA-Public Use
  Company Number: KR-ROCHE-3069992

PATIENT
  Age: 41 Year
  Sex: Male
  Weight: 62.4 kg

DRUGS (18)
  1. ATEZOLIZUMAB [Suspect]
     Active Substance: ATEZOLIZUMAB
     Indication: Hepatocellular carcinoma
     Dosage: ON 20/AUG/2021, ATEZOLIZUMAB ADMINISTERED
     Route: 041
     Dates: start: 20210730
  2. BEVACIZUMAB [Suspect]
     Active Substance: BEVACIZUMAB
     Indication: Hepatocellular carcinoma
     Dosage: ON 20/AUG/2021, BEVACIZUMAB ADMINISTERED
     Route: 042
     Dates: start: 20210730
  3. NEXIUM [Concomitant]
     Active Substance: ESOMEPRAZOLE MAGNESIUM
     Indication: Gastrooesophageal reflux disease
     Dates: start: 202107
  4. ALDACTONE [Concomitant]
     Active Substance: SPIRONOLACTONE
     Indication: Hypertension
     Dates: start: 202107
  5. VEMLIDY [Concomitant]
     Active Substance: TENOFOVIR ALAFENAMIDE FUMARATE
     Indication: Hepatitis B
     Dates: start: 2019
  6. PIPERACILLIN SODIUM\TAZOBACTAM SODIUM [Concomitant]
     Active Substance: PIPERACILLIN SODIUM\TAZOBACTAM SODIUM
     Indication: Pyrexia
     Dates: start: 20210901, end: 20210902
  7. TRAMADOL HYDROCHLORIDE [Concomitant]
     Active Substance: TRAMADOL HYDROCHLORIDE
     Indication: Cancer pain
     Dates: start: 20210901, end: 20210902
  8. PROPACETAMOL HYDROCHLORIDE [Concomitant]
     Active Substance: PROPACETAMOL HYDROCHLORIDE
     Indication: Pyrexia
     Dates: start: 20210902, end: 20210909
  9. OXYCODONE HYDROCHLORIDE [Concomitant]
     Active Substance: OXYCODONE HYDROCHLORIDE
     Indication: Cancer pain
     Dosage: 20MG/2ML
     Dates: start: 20210902, end: 20210907
  10. URSODIOL [Concomitant]
     Active Substance: URSODIOL
     Dates: start: 20210902, end: 20210909
  11. GODEX (SOUTH KOREA) [Concomitant]
     Dates: start: 20210820, end: 20210909
  12. OXYCODONE HYDROCHLORIDE [Concomitant]
     Active Substance: OXYCODONE HYDROCHLORIDE
     Indication: Cancer pain
     Dates: start: 20210902, end: 20210909
  13. FURIX (SOUTH KOREA) [Concomitant]
  14. MOROXACIN [Concomitant]
     Indication: Pyrexia
     Dates: start: 20210902, end: 20210909
  15. MEROPENEM [Concomitant]
     Active Substance: MEROPENEM
     Indication: Pyrexia
     Dates: start: 20210903, end: 20210909
  16. DULACKHAN EASY SYRUP [Concomitant]
     Indication: Constipation
     Dates: start: 20210904, end: 20210910
  17. TEICONIN [Concomitant]
     Indication: Pyrexia
     Dates: start: 20210906, end: 20210909
  18. FENTANYL [Concomitant]
     Active Substance: FENTANYL
     Indication: Cancer pain
     Dates: start: 20210908, end: 20210910

REACTIONS (4)
  - Pyrexia [Recovered/Resolved]
  - Ascites [Recovering/Resolving]
  - Constipation [Recovering/Resolving]
  - Hypoalbuminaemia [Recovered/Resolved]

NARRATIVE: CASE EVENT DATE: 20210827
